FAERS Safety Report 5788171-6 (Version None)
Quarter: 2008Q2

REPORT INFORMATION
  Report Type: 
  Country: None (occurrence: None)
  Receive Date: 20080625
  Receipt Date: 20080617
  Transmission Date: 20081010
  Serious: Yes (Hospitalization)
  Sender: FDA-Public Use
  Company Number: US-ASTRAZENECA-2008UW12314

PATIENT
  Age: 72 Year
  Sex: Male
  Weight: 121 kg

DRUGS (9)
  1. CRESTOR [Suspect]
     Route: 048
  2. CUBICIN [Interacting]
     Indication: STAPHYLOCOCCAL INFECTION
     Dosage: EVERY 24 HOURS
     Route: 042
     Dates: start: 20040519
  3. BACTRIM DS [Interacting]
  4. LISINOPRIL [Concomitant]
     Route: 048
  5. OXYBUTYNIN CHLORIDE [Concomitant]
  6. PAXIL [Concomitant]
  7. AVANDIA [Concomitant]
  8. GLUCOPHAGE [Concomitant]
  9. VANCOMYCIN [Concomitant]

REACTIONS (4)
  - CLOSTRIDIUM DIFFICILE TOXIN TEST POSITIVE [None]
  - DRUG INTERACTION [None]
  - ESCHERICHIA BACTERAEMIA [None]
  - RHABDOMYOLYSIS [None]
